FAERS Safety Report 4848581-8 (Version None)
Quarter: 2005Q4

REPORT INFORMATION
  Report Type: 
  Country: None (occurrence: None)
  Receive Date: 20051206
  Receipt Date: 20051122
  Transmission Date: 20060501
  Serious: Yes (Other)
  Sender: FDA-Public Use
  Company Number: TOR 2005-0031

PATIENT
  Age: 77 Year
  Sex: Female

DRUGS (4)
  1. FARESTON [Suspect]
     Indication: BREAST CANCER
     Dosage: 100 MG
     Route: 048
     Dates: start: 20050819, end: 20050822
  2. CAPECITABINE [Suspect]
     Dosage: 2400 MG
     Route: 048
     Dates: start: 20050819, end: 20050822
  3. ALLOPURINOL [Concomitant]
  4. LIMAPROST ALFADEX [Concomitant]

REACTIONS (15)
  - BLOOD POTASSIUM DECREASED [None]
  - BLOOD SODIUM INCREASED [None]
  - BODY TEMPERATURE INCREASED [None]
  - BURNING SENSATION [None]
  - CHILLS [None]
  - LIVER DISORDER [None]
  - LYMPHADENOPATHY [None]
  - MYALGIA [None]
  - PAIN [None]
  - PAIN IN EXTREMITY [None]
  - PALMAR-PLANTAR ERYTHRODYSAESTHESIA SYNDROME [None]
  - RASH VESICULAR [None]
  - TREATMENT NONCOMPLIANCE [None]
  - VARICOSE VEIN [None]
  - VENOUS THROMBOSIS [None]
